FAERS Safety Report 7661773-8 (Version None)
Quarter: 2011Q3

REPORT INFORMATION
  Report Type: 
  Country: None (occurrence: None)
  Receive Date: 20110805
  Receipt Date: 20101027
  Transmission Date: 20111222
  Serious: No
  Sender: FDA-Public Use
  Company Number: US-ABBOTT-10P-163-0681764-00

PATIENT
  Sex: Female
  Weight: 91.254 kg

DRUGS (7)
  1. ESTRADIOL [Concomitant]
     Indication: HORMONE REPLACEMENT THERAPY
     Route: 048
     Dates: start: 20080101
  2. ZANTAC [Concomitant]
     Indication: DYSPEPSIA
     Dosage: ONCE DAILY AS NEEDED
     Route: 048
  3. NIASPAN [Suspect]
     Indication: BLOOD CHOLESTEROL INCREASED
  4. THEOPHYLLINE [Concomitant]
     Indication: ASTHMA
     Dosage: UP TO TWICE A DAY
     Route: 048
  5. LISINOPRIL AND HYDROCHLOROTHIAZIDE [Concomitant]
     Indication: HYPERTENSION
     Dosage: 2-20/12.5 DAILY
     Route: 048
  6. NIASPAN [Suspect]
     Indication: BLOOD TRIGLYCERIDES INCREASED
     Dosage: 500 MG DAILY FOR COUPLE DAYS
     Route: 048
     Dates: start: 20101025
  7. ADVIL LIQUI-GELS [Concomitant]
     Indication: PRODUCT USED FOR UNKNOWN INDICATION
     Route: 048

REACTIONS (2)
  - EXPIRED DRUG ADMINISTERED [None]
  - PRURITUS [None]
